FAERS Safety Report 5033769-6 (Version None)
Quarter: 2006Q2

REPORT INFORMATION
  Report Type: 
  Country: None (occurrence: None)
  Receive Date: 20060623
  Receipt Date: 20051221
  Transmission Date: 20061013
  Serious: Yes (Other)
  Sender: FDA-Public Use
  Company Number: PHNU2005DE04237

PATIENT
  Age: 67 Year
  Sex: Female
  Weight: 70 kg

DRUGS (14)
  1. PANTOZOL [Concomitant]
     Indication: PROPHYLAXIS
     Dosage: 40 MG, BID
     Route: 065
  2. AMINEURIN [Concomitant]
     Indication: DEPRESSION
     Dosage: 25MG - 25 MG - 50 MG/DAY
     Route: 048
  3. AROMASIN [Concomitant]
     Indication: BREAST CANCER FEMALE
     Dosage: 25 MG, QD
     Route: 048
  4. CIPRAMIL [Concomitant]
     Indication: DEPRESSION
     Dosage: 25 MG, QD
     Route: 048
  5. PALLADON [Concomitant]
     Indication: PAIN
     Dosage: 2.6 MG, QD
     Route: 048
  6. RADIOTHERAPY [Concomitant]
     Route: 061
     Dates: start: 20040601, end: 20040801
  7. ZOMETA [Suspect]
     Indication: METASTASES TO BONE
     Dosage: 4 MG, QMO
     Route: 042
     Dates: start: 20040501
  8. TAMOXIFEN [Concomitant]
     Indication: BREAST CANCER FEMALE
     Dosage: 20 MG, QD
     Route: 048
     Dates: start: 20040501, end: 20051101
  9. DURAGESIC-100 [Concomitant]
     Indication: BONE PAIN
     Dosage: 125 UG, TID
     Route: 062
     Dates: start: 20040501
  10. IBUPROFEN [Concomitant]
     Indication: BONE PAIN
     Dosage: 400 MG, BID
     Route: 048
     Dates: start: 20050601
  11. SAROTEN [Concomitant]
     Indication: DEPRESSION
     Dosage: 25MG-25MG-50MG/DAY
     Route: 065
     Dates: start: 20040101
  12. NOVALGIN [Concomitant]
     Indication: BONE PAIN
     Dosage: 40 DRP, TID
     Route: 048
     Dates: start: 20050601
  13. VOLTAREN [Concomitant]
     Indication: BONE PAIN
     Dosage: 50 MG, QD
     Route: 054
     Dates: start: 20040501
  14. PASPERTIN [Concomitant]
     Indication: NAUSEA
     Dosage: 20 DRP, TID
     Route: 048
     Dates: start: 20040501

REACTIONS (10)
  - BONE DISORDER [None]
  - DENTAL CARIES [None]
  - GINGIVAL DISORDER [None]
  - GINGIVAL PAIN [None]
  - HYPERBARIC OXYGEN THERAPY [None]
  - OSTEOMYELITIS [None]
  - OSTEONECROSIS [None]
  - OSTEOTOMY [None]
  - PRIMARY SEQUESTRUM [None]
  - TOOTH EXTRACTION [None]
